FAERS Safety Report 23758817 (Version 1)
Quarter: 2024Q2

REPORT INFORMATION
  Report Type: Spontaneous
  Country: US (occurrence: None)
  Receive Date: 20240418
  Receipt Date: 20240418
  Transmission Date: 20240716
  Serious: Yes (Other)
  Sender: FDA-Public Use
  Company Number: US-ROCHE-3502343

PATIENT
  Sex: Male

DRUGS (8)
  1. AVASTIN [Suspect]
     Active Substance: BEVACIZUMAB
     Indication: Hepatic neoplasm
     Route: 065
  2. LENVIMA [Suspect]
     Active Substance: LENVATINIB
     Indication: Hepatocellular carcinoma
     Dosage: TOTAL OF 12 MG DAILY
     Route: 048
     Dates: start: 20231208
  3. ALDACTONE [Concomitant]
     Active Substance: SPIRONOLACTONE
  4. FOLBEE PLUS [Concomitant]
  5. LASIX [Concomitant]
     Active Substance: FUROSEMIDE
  6. MIDODRINE [Concomitant]
     Active Substance: MIDODRINE
  7. ONDANSETRON [Concomitant]
     Active Substance: ONDANSETRON
  8. REGLAN [Concomitant]
     Active Substance: METOCLOPRAMIDE HYDROCHLORIDE

REACTIONS (1)
  - Internal haemorrhage [Unknown]
